FAERS Safety Report 7362023-2 (Version None)
Quarter: 2011Q1

REPORT INFORMATION
  Report Type: 
  Country: None (occurrence: None)
  Receive Date: 20110318
  Receipt Date: 20110317
  Transmission Date: 20110831
  Serious: No
  Sender: FDA-Public Use
  Company Number: BR-ABBOTT-11P-020-0702385-00

PATIENT
  Sex: Male
  Weight: 35 kg

DRUGS (1)
  1. SYNTHROID [Suspect]
     Indication: DRUG EXPOSURE DURING PREGNANCY
     Route: 064

REACTIONS (2)
  - NORMAL NEWBORN [None]
  - DRUG EXPOSURE DURING PREGNANCY [None]
